FAERS Safety Report 10080124 (Version 1)
Quarter: 2014Q2

REPORT INFORMATION
  Report Type: Spontaneous
  Country: US (occurrence: US)
  Receive Date: 20140415
  Receipt Date: 20140415
  Transmission Date: 20141212
  Serious: Yes (Hospitalization, Other)
  Sender: FDA-Public Use
  Company Number: US-FRI-1000066353

PATIENT
  Sex: Female
  Weight: 70.5 kg

DRUGS (20)
  1. CEFTAROLINE FOSAMIL [Suspect]
     Indication: CYSTIC FIBROSIS
     Dosage: 1800 MG
     Route: 042
     Dates: start: 20130902, end: 20130913
  2. CEFTAROLINE FOSAMIL [Suspect]
     Indication: PNEUMONIA STAPHYLOCOCCAL
  3. ASCORBIC ACID [Concomitant]
     Dosage: 1 G
     Route: 048
  4. AZITHROMYCIN [Concomitant]
     Dosage: 500 MG MON,WED, FRI
     Route: 048
  5. BUDESONIDE [Concomitant]
     Route: 045
  6. CALCIUM CARBONATE [Concomitant]
     Dosage: 2500 MG
  7. VITAMIN D3 [Concomitant]
     Dosage: 2000 IU
  8. DORNASE ALFA [Concomitant]
  9. ADVAIR [Concomitant]
  10. LANTUS [Concomitant]
  11. LEVOTHYROXINE [Concomitant]
  12. MEROPENEM [Concomitant]
     Dosage: 4 GRAM
  13. MONTELUKAST [Concomitant]
     Dosage: 10 MG
  14. OMEGA 3 [Concomitant]
     Dosage: 1200 MG
  15. PANCRELIPASE [Concomitant]
  16. PHYTONADIONE [Concomitant]
     Dosage: 5 MG
     Dates: start: 20130903, end: 20130903
  17. SODIUM CHLORIDE [Concomitant]
     Route: 055
  18. TOBRAMYCIN [Concomitant]
     Route: 042
  19. URSODIOL [Concomitant]
     Dosage: 600 MG
  20. HEPARIN [Concomitant]
     Route: 041

REACTIONS (6)
  - Chills [Recovered/Resolved]
  - Dyspnoea [Recovered/Resolved]
  - Rash [Recovered/Resolved]
  - Oedema peripheral [Recovered/Resolved]
  - Face oedema [Recovered/Resolved]
  - Off label use [Recovered/Resolved]
